FAERS Safety Report 8835366 (Version 1)
Quarter: 2012Q4

REPORT INFORMATION
  Report Type: 
  Country: JP (occurrence: JP)
  Receive Date: 20121011
  Receipt Date: 20121011
  Transmission Date: 20130627
  Serious: Yes (Other)
  Sender: FDA-Public Use
  Company Number: JP-SP-2012-09311

PATIENT
  Sex: Male

DRUGS (1)
  1. IMMUCYST [Suspect]
     Indication: PRODUCT USED FOR UNKNOWN INDICATION
     Route: 043

REACTIONS (1)
  - Orchitis [Unknown]
